FAERS Safety Report 10099167 (Version 1)
Quarter: 2014Q2

REPORT INFORMATION
  Report Type: Spontaneous
  Country: US (occurrence: None)
  Receive Date: 20140422
  Receipt Date: 20140422
  Transmission Date: 20141212
  Serious: No
  Sender: FDA-Public Use
  Company Number: None

PATIENT
  Sex: Female
  Weight: 63.5 kg

DRUGS (1)
  1. ONABOTULINUMTOXIN A [Suspect]

REACTIONS (14)
  - Procedural pain [None]
  - Ill-defined disorder [None]
  - Lacrimation increased [None]
  - Blood pressure increased [None]
  - Palpitations [None]
  - Heart rate increased [None]
  - Pain [None]
  - Neck pain [None]
  - Musculoskeletal pain [None]
  - Odynophagia [None]
  - Myalgia [None]
  - Insomnia [None]
  - Toxicity to various agents [None]
  - Overdose [None]
